FAERS Safety Report 6324490-2 (Version None)
Quarter: 2009Q3

REPORT INFORMATION
  Report Type: 
  Country: None (occurrence: None)
  Receive Date: 20090824
  Receipt Date: 20090512
  Transmission Date: 20100115
  Serious: No
  Sender: FDA-Public Use
  Company Number: US-ABBOTT-09P-163-0573006-00

PATIENT
  Sex: Male
  Weight: 88.984 kg

DRUGS (19)
  1. NIASPAN [Suspect]
     Indication: HIGH DENSITY LIPOPROTEIN DECREASED
     Dates: start: 20090427
  2. NIASPAN [Suspect]
     Indication: BLOOD TRIGLYCERIDES INCREASED
  3. ASPIRIN [Concomitant]
     Indication: DRUG USE FOR UNKNOWN INDICATION
     Route: 048
  4. FUROSEMIDE [Concomitant]
     Indication: DRUG USE FOR UNKNOWN INDICATION
  5. AMLODIPINE [Concomitant]
     Indication: DRUG USE FOR UNKNOWN INDICATION
  6. PANTOPRAZOLE SODIUM [Concomitant]
     Indication: DRUG USE FOR UNKNOWN INDICATION
  7. ACETAZOLAMIDE [Concomitant]
     Indication: DRUG USE FOR UNKNOWN INDICATION
  8. FENOFIBRATE [Concomitant]
     Indication: DRUG USE FOR UNKNOWN INDICATION
     Route: 048
  9. JANUVIA [Concomitant]
     Indication: DRUG USE FOR UNKNOWN INDICATION
  10. PRANDIM [Concomitant]
     Indication: DRUG USE FOR UNKNOWN INDICATION
     Dosage: 2 PILLS IN THE MORNING; 2 PILLS IN THE EVENING; ONE PILL AT LUNCH
     Route: 048
  11. INSULIN [Concomitant]
     Indication: DRUG USE FOR UNKNOWN INDICATION
     Dosage: SLIDING SCALE FOR BLOOD SUGAR GREATER THAN 150
     Route: 058
  12. POTASSIUM CHLORIDE [Concomitant]
     Indication: DRUG USE FOR UNKNOWN INDICATION
  13. LOVAZA [Concomitant]
     Indication: DRUG USE FOR UNKNOWN INDICATION
  14. CARVEDILOL [Concomitant]
     Indication: DRUG USE FOR UNKNOWN INDICATION
  15. DIGOXIN [Concomitant]
     Indication: DRUG USE FOR UNKNOWN INDICATION
  16. MAGNESIUM [Concomitant]
     Indication: DRUG USE FOR UNKNOWN INDICATION
     Route: 048
  17. TIKOSYN [Concomitant]
     Indication: DRUG USE FOR UNKNOWN INDICATION
  18. NITROGLYCERIN [Concomitant]
     Indication: DRUG USE FOR UNKNOWN INDICATION
     Dosage: PATCH 0.4MG DAILY TOPICAL DURING THE DAY; OFF AT NIGHT
     Route: 061
  19. ANTIBIOTICS [Concomitant]
     Indication: CELLULITIS
     Dosage: INTERMITTENT

REACTIONS (2)
  - BLOOD GLUCOSE INCREASED [None]
  - FLUSHING [None]
